FAERS Safety Report 7889217 (Version 5)
Quarter: 2013Q1

REPORT INFORMATION
  Report Type: Report from Study
  Country: JP (occurrence: JP)
  Receive Date: 20110407
  Receipt Date: 20130306
  Transmission Date: 20140127
  Serious: Yes (Life-Threatening, Hospitalization, Other)
  Sender: FDA-Public Use
  Company Number: JP-ROCHE-768804

PATIENT
  Age: 59 Year
  Sex: Female

DRUGS (65)
  1. TOCILIZUMAB [Suspect]
     Indication: RHEUMATOID ARTHRITIS
     Route: 042
     Dates: start: 20090415, end: 20090415
  2. TOCILIZUMAB [Suspect]
     Route: 042
     Dates: start: 20090508, end: 20090508
  3. TOCILIZUMAB [Suspect]
     Route: 042
     Dates: start: 20090605, end: 20090605
  4. TOCILIZUMAB [Suspect]
     Route: 042
     Dates: start: 20090703, end: 20090703
  5. TOCILIZUMAB [Suspect]
     Route: 042
     Dates: start: 20090731, end: 20090731
  6. TOCILIZUMAB [Suspect]
     Route: 042
     Dates: start: 20090828, end: 20090828
  7. TOCILIZUMAB [Suspect]
     Route: 042
     Dates: start: 20090925, end: 20090925
  8. TOCILIZUMAB [Suspect]
     Route: 042
     Dates: start: 20091023, end: 20091023
  9. TOCILIZUMAB [Suspect]
     Route: 042
     Dates: start: 20091120, end: 20091120
  10. TOCILIZUMAB [Suspect]
     Route: 042
     Dates: start: 20091211, end: 20091211
  11. TOCILIZUMAB [Suspect]
     Route: 042
     Dates: start: 20100118, end: 20100118
  12. TOCILIZUMAB [Suspect]
     Route: 042
     Dates: start: 20100514, end: 20100611
  13. TOCILIZUMAB [Suspect]
     Route: 042
     Dates: start: 20110318, end: 20120106
  14. DEXAMETHASONE SODIUM PHOSPHATE [Suspect]
     Indication: PRODUCT USED FOR UNKNOWN INDICATION
     Dosage: DRUG: DECADRON
     Route: 041
     Dates: start: 20090207, end: 20090207
  15. DEXAMETHASONE SODIUM PHOSPHATE [Suspect]
     Dosage: INFUSION RATE DECREASED.
     Route: 041
  16. BREDININ [Suspect]
     Indication: RHEUMATOID ARTHRITIS
     Route: 048
     Dates: end: 20100610
  17. BREDININ [Suspect]
     Route: 048
     Dates: start: 20110916, end: 20120105
  18. BREDININ [Suspect]
     Route: 048
     Dates: start: 20120106
  19. METHYLPREDNISOLONE [Suspect]
     Indication: RHEUMATOID ARTHRITIS
     Route: 048
     Dates: start: 20090731, end: 20090924
  20. METHYLPREDNISOLONE [Suspect]
     Route: 048
     Dates: start: 20090410, end: 20090730
  21. METHYLPREDNISOLONE [Suspect]
     Route: 048
     Dates: start: 20090410, end: 20090730
  22. METHYLPREDNISOLONE [Suspect]
     Route: 048
     Dates: start: 20090925
  23. METHYLPREDNISOLONE [Suspect]
     Route: 048
     Dates: start: 20110609
  24. METHYLPREDNISOLONE [Suspect]
     Route: 048
     Dates: start: 20110610, end: 20120329
  25. METHYLPREDNISOLONE [Suspect]
     Route: 048
     Dates: start: 20120330
  26. TACROLIMUS HYDRATE [Suspect]
     Indication: RHEUMATOID ARTHRITIS
     Route: 048
     Dates: end: 20090312
  27. TACROLIMUS HYDRATE [Suspect]
     Route: 048
     Dates: end: 20090312
  28. TACROLIMUS HYDRATE [Suspect]
     Route: 048
     Dates: start: 20090327, end: 20090410
  29. ZOVIRAX [Concomitant]
     Indication: OPHTHALMIC HERPES SIMPLEX
     Dosage: DOSE FORM;EYE DROP, TAKEN AS NEEDED
     Route: 047
  30. ZOVIRAX [Concomitant]
     Dosage: OCULUS SINISTERA
     Route: 047
  31. BROMFENAC SODIUM [Concomitant]
     Indication: OPHTHALMIC HERPES SIMPLEX
     Dosage: DRUG:BRONUCK(BROMFENAC SODIUM HYDRATE), DOSE FORM: EYE DROP,TAKEN AS NEEDED
     Route: 047
  32. PAXIL [Concomitant]
     Indication: DEPRESSION
     Dosage: DRUG: PAROXETINE HYDROCHLORIDE HYDRATE
     Route: 048
  33. PAXIL [Concomitant]
     Route: 048
  34. CELCOX [Concomitant]
     Indication: RHEUMATOID ARTHRITIS
     Dosage: DRUG: CELECOX
     Route: 048
  35. GASTER D [Concomitant]
     Route: 048
  36. LIPITOR [Concomitant]
     Indication: HYPERLIPIDAEMIA
     Dosage: DRUG: ATORVASTATIN CALCIUM
     Route: 048
  37. TOCILIZUMAB [Concomitant]
     Indication: HYPERTENSION
     Route: 048
  38. OLMETEC [Concomitant]
     Indication: HYPERTENSION
     Route: 048
  39. SULFAMETHOXAZOLE/TRIMETHOPRIM [Concomitant]
     Indication: PROPHYLAXIS
     Route: 048
  40. AMARYL [Concomitant]
     Indication: DIABETES MELLITUS
     Route: 048
  41. NEUROTROPIN [Concomitant]
     Dosage: INTRAVENOUS (NOT OTHERWISE SPECIFIED), TAKEN AS NEEDED
     Route: 042
  42. ELCITONIN [Concomitant]
     Indication: OSTEOPOROSIS
     Dosage: DRUG: ELCITONIN INJ.20S(ELCATONIN)
     Route: 030
  43. VOLTAREN [Concomitant]
     Dosage: DRUG: DICLOFENAC SODIUM, TAKEN AS NEEDED, DOSE FORM:SUPPOSITORIAE RECTALEY
     Route: 054
     Dates: start: 20110415, end: 20110707
  44. VOLTAREN [Concomitant]
     Dosage: DOSE FORM:JELLY, TAKEN AS NEEDED,DICLOFENAC SODIUM
     Route: 054
  45. VOLTAREN [Concomitant]
     Dosage: DOSE FORM:JELLY, TAKEN AS NEEDED,DICLOFENAC SODIUM
     Route: 003
  46. LASIX [Concomitant]
     Dosage: DOSE FORM: MINUTE GRAIN
     Route: 048
     Dates: start: 20090403, end: 20090409
  47. LASIX [Concomitant]
     Route: 048
  48. HYALEIN [Concomitant]
     Dosage: TAKEN AS NEEDED, DOSE FORM:EYE DROP
     Route: 047
  49. OPALMON [Concomitant]
     Dosage: DRUG: LIMAPROST ALFADEX
     Route: 048
  50. FLURBIPROFEN [Concomitant]
     Indication: RHEUMATOID ARTHRITIS
     Dosage: DRUG REPORTED AS ADOFEED
     Route: 061
  51. VFEND [Concomitant]
     Route: 048
     Dates: end: 20100525
  52. MUCODYNE [Concomitant]
     Route: 048
  53. VOLTAREN SR [Concomitant]
     Indication: RHEUMATOID ARTHRITIS
     Route: 048
  54. MUCOSTA [Concomitant]
     Route: 048
     Dates: start: 20110415
  55. MOHRUS TAPE [Concomitant]
     Route: 061
     Dates: start: 20110415
  56. MEIACT [Concomitant]
     Route: 048
     Dates: start: 20110708, end: 20110712
  57. FERROUS FUMARATE [Concomitant]
     Dosage: DRUG:FERRUM
     Route: 048
     Dates: start: 20110916, end: 201110
  58. GATIFLO [Concomitant]
     Dosage: RIGHT EYE
     Route: 047
     Dates: start: 201106, end: 201107
  59. GATIFLO [Concomitant]
     Dosage: 1-2 DROP RIGHT EYE ONCE
     Route: 047
     Dates: start: 201107
  60. GATIFLO [Concomitant]
     Dosage: 1-2 DROP OCULUS SINISTERA ONCE
     Route: 047
     Dates: start: 201107
  61. RINDERON [Concomitant]
     Dosage: 1-2 DROP RIGHT EYE ONCE
     Route: 047
     Dates: start: 201107
  62. CRAVIT [Concomitant]
     Dosage: 1-2 DROP RIGHT EYE ONCE
     Route: 047
     Dates: start: 201107
  63. CEFZON [Concomitant]
     Route: 048
     Dates: start: 20110616, end: 20110619
  64. CEFZON [Concomitant]
     Route: 048
     Dates: start: 20110711, end: 20110714
  65. CEFZON [Concomitant]
     Route: 048
     Dates: start: 20120224, end: 20120226

REACTIONS (12)
  - Lung disorder [Unknown]
  - Systemic inflammatory response syndrome [Unknown]
  - Disseminated intravascular coagulation [Unknown]
  - Cardiac failure [Recovered/Resolved]
  - Septic shock [Recovered/Resolved]
  - Nephrolithiasis [Unknown]
  - Perinephric abscess [Unknown]
  - Abscess limb [Recovering/Resolving]
  - Bronchitis [Recovered/Resolved]
  - Keratitis bacterial [Not Recovered/Not Resolved]
  - Arthritis fungal [Not Recovered/Not Resolved]
  - Upper respiratory tract inflammation [Recovered/Resolved]
